FAERS Safety Report 6155459-9 (Version None)
Quarter: 2009Q2

REPORT INFORMATION
  Report Type: 
  Country: None (occurrence: None)
  Receive Date: 20090415
  Receipt Date: 20090413
  Transmission Date: 20091009
  Serious: Yes (Death, Hospitalization)
  Sender: FDA-Public Use
  Company Number: PHEH2009US01809

PATIENT
  Sex: Male

DRUGS (5)
  1. EXJADE [Suspect]
     Indication: IRON OVERLOAD
     Dosage: UNK
     Dates: start: 20060101
  2. EXJADE [Suspect]
     Indication: MYELODYSPLASTIC SYNDROME
  3. REVLIMID [Suspect]
     Indication: MYELODYSPLASTIC SYNDROME
     Dosage: UNK
     Dates: start: 20040512
  4. NEUPOGEN [Concomitant]
  5. PROCRIT                            /00909301/ [Concomitant]

REACTIONS (8)
  - ASTHENIA [None]
  - DIARRHOEA [None]
  - DISEASE PROGRESSION [None]
  - GAIT DISTURBANCE [None]
  - GASTROINTESTINAL TUBE INSERTION [None]
  - HALLUCINATION [None]
  - MALNUTRITION [None]
  - SWELLING [None]
